FAERS Safety Report 9936827 (Version 1)
Quarter: 2014Q1

REPORT INFORMATION
  Report Type: Spontaneous
  Country: US (occurrence: None)
  Receive Date: 20140110
  Receipt Date: 20140110
  Transmission Date: 20141002
  Serious: Yes (Hospitalization)
  Sender: FDA-Public Use
  Company Number: US-011282

PATIENT
  Age: 39 Year
  Sex: Female
  Weight: 48.54 kg

DRUGS (3)
  1. LYSTEDA [Suspect]
     Indication: PRODUCT USED FOR UNKNOWN INDICATION
     Dates: start: 20121201, end: 20121202
  2. PRENATAL VITAMINS /02014401/ [Concomitant]
  3. COLACE [Concomitant]

REACTIONS (3)
  - Menorrhagia [None]
  - Haemoglobin decreased [None]
  - Abdominal pain [None]
